FAERS Safety Report 16367544 (Version 2)
Quarter: 2020Q4

REPORT INFORMATION
  Report Type: Spontaneous
  Country: US (occurrence: US)
  Receive Date: 20190529
  Receipt Date: 20201130
  Transmission Date: 20210113
  Serious: No
  Sender: FDA-Public Use
  Company Number: US-PFIZER INC-2019228119

PATIENT
  Age: 57 Year
  Sex: Female

DRUGS (2)
  1. LYRICA [Suspect]
     Active Substance: PREGABALIN
     Dosage: 25 MG, EVERY OTHER NIGHT FOR ONE MONTH
  2. LYRICA [Suspect]
     Active Substance: PREGABALIN
     Dosage: 25 MG, ONCE DAILY (ONE TABLET AT NIGHT)

REACTIONS (2)
  - Malaise [Unknown]
  - Migraine [Unknown]
